FAERS Safety Report 12847698 (Version 1)
Quarter: 2016Q4

REPORT INFORMATION
  Report Type: Spontaneous
  Country: US (occurrence: US)
  Receive Date: 20161014
  Receipt Date: 20161014
  Transmission Date: 20170207
  Serious: No
  Sender: FDA-Public Use
  Company Number: US-TEVA-693708ACC

PATIENT
  Age: 45 Year
  Sex: Female
  Weight: 73.55 kg

DRUGS (5)
  1. TAKE ACTION [Suspect]
     Active Substance: LEVONORGESTREL
     Indication: POST COITAL CONTRACEPTION
     Dates: start: 20160912, end: 20160912
  2. CLARITIN [Concomitant]
     Active Substance: LORATADINE
     Indication: HYPERSENSITIVITY
  3. HAIR, NAIL AND SKIN VITAMIN [Concomitant]
     Indication: SUPPLEMENTATION THERAPY
  4. MULTIVITAMIN [Concomitant]
     Active Substance: VITAMINS
     Indication: SUPPLEMENTATION THERAPY
  5. CLARITIN [Concomitant]
     Active Substance: LORATADINE
     Indication: MIDDLE EAR EFFUSION

REACTIONS (1)
  - Dysmenorrhoea [Not Recovered/Not Resolved]

NARRATIVE: CASE EVENT DATE: 20160914
